FAERS Safety Report 19133918 (Version 1)
Quarter: 2021Q2

REPORT INFORMATION
  Report Type: Spontaneous
  Country: US (occurrence: US)
  Receive Date: 20210414
  Receipt Date: 20210414
  Transmission Date: 20210717
  Serious: Yes (Other)
  Sender: FDA-Public Use
  Company Number: US-ACCORD-205387

PATIENT
  Sex: Male

DRUGS (1)
  1. FINASTERIDE. [Suspect]
     Active Substance: FINASTERIDE
     Indication: PROSTATISM
     Route: 048
     Dates: start: 20200804

REACTIONS (9)
  - Diarrhoea [Unknown]
  - Dizziness [Unknown]
  - Erectile dysfunction [Unknown]
  - Abdominal pain [Unknown]
  - Headache [Unknown]
  - Rhinorrhoea [Unknown]
  - Chills [Unknown]
  - Peripheral swelling [Unknown]
  - Weight increased [Unknown]
